FAERS Safety Report 4319202-8 (Version None)
Quarter: 2004Q1

REPORT INFORMATION
  Report Type: 
  Country: None (occurrence: None)
  Receive Date: 20040316
  Receipt Date: 20040304
  Transmission Date: 20041129
  Serious: Yes (Hospitalization, Other)
  Sender: FDA-Public Use
  Company Number: 028-20785-03040252(0)

PATIENT
  Age: 58 Year
  Sex: Male

DRUGS (12)
  1. THALOMID [Suspect]
     Indication: MULTIPLE MYELOMA
     Dosage: 200-400 MG, DAILY, ORAL
     Route: 048
     Dates: start: 20030101, end: 20031201
  2. PAMIDRONATE (PAMIDRONATE DISODIUIM) [Concomitant]
  3. PROTEASE INHIBITORS [Concomitant]
  4. SUSTIVA [Concomitant]
  5. 3TC (LAMIVUDINE) [Concomitant]
  6. ZIAGEN [Concomitant]
  7. FUROSEMIDE [Concomitant]
  8. ATENOLOL [Concomitant]
  9. INDAPAMIDE [Concomitant]
  10. ALLOPURINOL [Concomitant]
  11. POTASSIUM CHLORIDE [Concomitant]
  12. OMEPRAZOLE [Concomitant]

REACTIONS (9)
  - ASCITES [None]
  - BLOOD CREATININE INCREASED [None]
  - FATIGUE [None]
  - HEPATIC FAILURE [None]
  - IMMUNOGLOBULINS INCREASED [None]
  - INFLUENZA LIKE ILLNESS [None]
  - MUSCLE CRAMP [None]
  - NEUROPATHY [None]
  - OEDEMA PERIPHERAL [None]
